FAERS Safety Report 5575113-1 (Version None)
Quarter: 2007Q4

REPORT INFORMATION
  Report Type: 
  Country: None (occurrence: None)
  Receive Date: 20071227
  Receipt Date: 20071217
  Transmission Date: 20080405
  Serious: Yes (Hospitalization, Disabling)
  Sender: FDA-Public Use
  Company Number: FR-PFIZER INC-2007083139

PATIENT
  Sex: Male
  Weight: 95 kg

DRUGS (9)
  1. SUTENT [Suspect]
     Indication: RENAL CANCER METASTATIC
     Route: 048
     Dates: start: 20070801, end: 20071002
  2. LANSOPRAZOLE [Concomitant]
     Route: 048
  3. FINASTERIDE [Concomitant]
     Route: 048
  4. FLUOXETINE HYDROCHLORIDE [Concomitant]
     Route: 048
  5. BROMAZEPAM [Concomitant]
     Route: 048
  6. ACETAMINOPHEN [Concomitant]
     Route: 048
  7. GRAPE SEED EXTRACT [Concomitant]
     Route: 048
  8. INSULIN [Concomitant]
     Route: 058
  9. VALSARTAN [Concomitant]
     Route: 048

REACTIONS (3)
  - CEREBROVASCULAR ACCIDENT [None]
  - PAIN IN EXTREMITY [None]
  - PLATELET COUNT DECREASED [None]
